FAERS Safety Report 16744102 (Version 3)
Quarter: 2019Q4

REPORT INFORMATION
  Report Type: Spontaneous
  Country: AU (occurrence: AU)
  Receive Date: 20190827
  Receipt Date: 20191205
  Transmission Date: 20200122
  Serious: Yes (Other)
  Sender: FDA-Public Use
  Company Number: AU-ALK-ABELLO A/S-2019AA002941

PATIENT

DRUGS (1)
  1. ACARIZAX [Suspect]
     Active Substance: DERMATOPHAGOIDES FARINAE\DERMATOPHAGOIDES PTERONYSSINUS
     Indication: MITE ALLERGY
     Dosage: 12 SQ-HDM, QD
     Route: 060
     Dates: start: 20180814

REACTIONS (4)
  - Tricuspid valve incompetence [Recovering/Resolving]
  - Chest discomfort [Recovering/Resolving]
  - Ventricular extrasystoles [Recovering/Resolving]
  - Left atrial dilatation [Recovering/Resolving]
